FAERS Safety Report 20676611 (Version 4)
Quarter: 2023Q2

REPORT INFORMATION
  Report Type: Spontaneous
  Country: ML (occurrence: ML)
  Receive Date: 20220406
  Receipt Date: 20230530
  Transmission Date: 20230722
  Serious: Yes (Other)
  Sender: FDA-Public Use
  Company Number: ML-STRIDES ARCOLAB LIMITED-2022SP003294

PATIENT
  Age: 37 Year
  Sex: Female

DRUGS (6)
  1. TENOFOVIR DISOPROXIL FUMARATE [Suspect]
     Active Substance: TENOFOVIR DISOPROXIL FUMARATE
     Indication: HIV infection
     Dosage: 300 MILLIGRAM/DAY (SINGLE COURSE)
     Route: 048
     Dates: start: 20161207
  2. LAMIVUDINE [Suspect]
     Active Substance: LAMIVUDINE
     Indication: HIV infection
     Dosage: 300 MILLIGRAM/DAY (SINGLE COURSE)
     Route: 048
     Dates: start: 20161207
  3. LOPINAVIR\RITONAVIR [Suspect]
     Active Substance: LOPINAVIR\RITONAVIR
     Indication: HIV infection
     Dosage: 500 MILLIGRAM/DAY (SINGLE COURSE)
     Route: 048
     Dates: start: 20210423, end: 20210621
  4. DARUNAVIR [Suspect]
     Active Substance: DARUNAVIR
     Indication: HIV infection
     Dosage: 800 MILLIGRAM/ DAY (SINGLE COURSE)
     Route: 048
     Dates: start: 20210621
  5. DOLUTEGRAVIR [Suspect]
     Active Substance: DOLUTEGRAVIR
     Indication: HIV infection
     Dosage: 50 MILLIGRAM/DAY (SINGLE COURSE)
     Route: 048
     Dates: start: 20190930, end: 20210423
  6. RITONAVIR [Suspect]
     Active Substance: RITONAVIR
     Indication: HIV infection
     Dosage: 100 MILLIGRAM/DAY (SINGLE COURSE)
     Route: 048
     Dates: start: 20210621

REACTIONS (2)
  - Premature delivery [Unknown]
  - Maternal exposure during pregnancy [Unknown]

NARRATIVE: CASE EVENT DATE: 20210930
